FAERS Safety Report 4566311-4 (Version None)
Quarter: 2005Q1

REPORT INFORMATION
  Report Type: 
  Country: None (occurrence: None)
  Receive Date: 20050126
  Receipt Date: 20050126
  Transmission Date: 20050727
  Serious: No
  Sender: FDA-Public Use
  Company Number: None

PATIENT
  Age: 62 Year
  Sex: Female
  Weight: 104.3273 kg

DRUGS (1)
  1. ADVAIR DISKUS 250/50 [Suspect]
     Indication: DYSPNOEA EXERTIONAL
     Dosage: 2   DAY   ORAL
     Route: 048
     Dates: start: 20001120, end: 20050125

REACTIONS (2)
  - GASTROOESOPHAGEAL REFLUX DISEASE [None]
  - NASAL SINUS DRAINAGE [None]
